FAERS Safety Report 6253120-3 (Version None)
Quarter: 2009Q2

REPORT INFORMATION
  Report Type: 
  Country: None (occurrence: None)
  Receive Date: 20090629
  Receipt Date: 20090616
  Transmission Date: 20091009
  Serious: Yes (Other)
  Sender: FDA-Public Use
  Company Number: 2009007018

PATIENT
  Sex: Female

DRUGS (7)
  1. ACTIQ [Suspect]
     Indication: VERTEBRAL INJURY
     Dosage: 800 MCG (800 MCG, 1 IN 1 ONCE), BU
     Route: 002
  2. LORTAB [Concomitant]
  3. FLEXERIL [Concomitant]
  4. KENALOG [Concomitant]
  5. VIOXX [Concomitant]
  6. DARVOCET N-100 (PARACETAMOL, DEXTROPROPOXYPHENE NAPSILATE) [Concomitant]
  7. LIDOCAINE [Concomitant]

REACTIONS (9)
  - FALL [None]
  - INSOMNIA [None]
  - MALAISE [None]
  - PALPITATIONS [None]
  - SOMNOLENCE [None]
  - TACHYCARDIA [None]
  - TREMOR [None]
  - VICTIM OF SEXUAL ABUSE [None]
  - VOMITING [None]
